FAERS Safety Report 4985882-7 (Version None)
Quarter: 2006Q2

REPORT INFORMATION
  Report Type: 
  Country: None (occurrence: None)
  Receive Date: 20060428
  Receipt Date: 20060421
  Transmission Date: 20061013
  Serious: Yes (Other)
  Sender: FDA-Public Use
  Company Number: PHNU2006DE01741

PATIENT
  Sex: Female
  Weight: 68 kg

DRUGS (3)
  1. LETROZOLE [Suspect]
     Indication: BREAST CANCER
     Dosage: 2.5 MG, QD
     Route: 048
     Dates: start: 20060201
  2. LEVODOPA W/BENSERAZIDE/ [Concomitant]
     Indication: PARKINSON'S DISEASE
     Dosage: 500/125 MG/DAY
     Route: 048
     Dates: start: 20040101
  3. LEVODOPA W/BENSERAZIDE/ [Concomitant]
     Dosage: 500/125 MG/DAY
     Route: 048
     Dates: start: 20040101

REACTIONS (1)
  - HYPERKINESIA [None]
